FAERS Safety Report 10347255 (Version 1)
Quarter: 2014Q3

REPORT INFORMATION
  Report Type: Spontaneous
  Country: US (occurrence: None)
  Receive Date: 20140728
  Receipt Date: 20140728
  Transmission Date: 20150326
  Serious: Yes (Other)
  Sender: FDA-Public Use
  Company Number: None

PATIENT
  Age: 2 Year
  Sex: Male
  Weight: 14 kg

DRUGS (1)
  1. ZOMETA [Suspect]
     Active Substance: ZOLEDRONIC ACID
     Indication: NEUROBLASTOMA
     Dosage: 4MG/M2  Q28DAYS  IV
     Route: 042
     Dates: start: 20060531, end: 20071024

REACTIONS (3)
  - Bone disorder [None]
  - Fall [None]
  - Femur fracture [None]

NARRATIVE: CASE EVENT DATE: 20080212
